FAERS Safety Report 8437217-5 (Version None)
Quarter: 2012Q2

REPORT INFORMATION
  Report Type: 
  Country: None (occurrence: None)
  Receive Date: 20120614
  Receipt Date: 20120316
  Transmission Date: 20120825
  Serious: No
  Sender: FDA-Public Use
  Company Number: US-AMGEN-USASP2011053473

PATIENT
  Age: 67 Year
  Sex: Female

DRUGS (10)
  1. NORVASC [Concomitant]
  2. NAPROSYN [Concomitant]
     Indication: ARTHRITIS
     Dosage: UNK
  3. LISINOPRIL [Concomitant]
  4. WOMENS ONE-A-DAY [Concomitant]
     Dosage: UNK
  5. PREVACID [Concomitant]
  6. PROLIA [Suspect]
     Indication: OSTEOPOROSIS POSTMENOPAUSAL
     Dosage: 60 MG, Q6MO
     Dates: start: 20110816
  7. ALLEGRA [Concomitant]
  8. PROLIA [Suspect]
     Indication: OSTEOPENIA
  9. OSCAL D [Concomitant]
  10. AMLODIPINE [Concomitant]
     Dosage: UNK

REACTIONS (8)
  - IMPAIRED HEALING [None]
  - DERMATITIS CONTACT [None]
  - INJECTION SITE REACTION [None]
  - INJECTION SITE ERYTHEMA [None]
  - INDURATION [None]
  - ULCER [None]
  - CONTUSION [None]
  - ERYTHEMA [None]
